FAERS Safety Report 15738097 (Version 2)
Quarter: 2018Q4

REPORT INFORMATION
  Report Type: Spontaneous
  Country: IT (occurrence: IT)
  Receive Date: 20181219
  Receipt Date: 20181228
  Transmission Date: 20190205
  Serious: Yes (Hospitalization)
  Sender: FDA-Public Use
  Company Number: IT-TEVA-2018-IT-987725

PATIENT
  Age: 36 Year
  Sex: Male
  Weight: 76 kg

DRUGS (3)
  1. OLANZAPINE. [Suspect]
     Active Substance: OLANZAPINE
     Indication: PSYCHOTIC DISORDER
     Dosage: 20 MILLIGRAM DAILY;
     Route: 048
     Dates: start: 20181014, end: 20181123
  2. AKINETON 2 MG COMPRESSE [Concomitant]
     Indication: MUSCLE RIGIDITY
     Route: 048
  3. NOZINAN 25 MG COMPRESSE RIVESTITE CON FILM [Concomitant]
     Active Substance: LEVOMEPROMAZINE
     Indication: PSYCHOTIC DISORDER
     Route: 048

REACTIONS (2)
  - Drug-induced liver injury [Recovering/Resolving]
  - Transaminases increased [Recovering/Resolving]

NARRATIVE: CASE EVENT DATE: 20181120
